FAERS Safety Report 7568404-6 (Version None)
Quarter: 2011Q2

REPORT INFORMATION
  Report Type: 
  Country: None (occurrence: None)
  Receive Date: 20110617
  Receipt Date: 20110608
  Transmission Date: 20111010
  Serious: Yes (Hospitalization, Other)
  Sender: FDA-Public Use
  Company Number: ACO_25128_2011

PATIENT
  Age: 52 Year
  Sex: Female
  Weight: 64.9 kg

DRUGS (4)
  1. AMPYRA [Suspect]
     Indication: GAIT DISTURBANCE
     Dosage: 10 MG, BID, ORAL
     Route: 048
     Dates: start: 20110501, end: 20110501
  2. AMFETAMINE W/DEXAMFETAMINE (AMFETAMINE, DEXAMFETAMINE) [Concomitant]
  3. COPAXONE [Concomitant]
  4. LEXAPRO [Concomitant]

REACTIONS (1)
  - CONVULSION [None]
